FAERS Safety Report 14767328 (Version 1)
Quarter: 2018Q2

REPORT INFORMATION
  Report Type: Spontaneous
  Country: IN (occurrence: IN)
  Receive Date: 20180417
  Receipt Date: 20180417
  Transmission Date: 20180711
  Serious: Yes (Other)
  Sender: FDA-Public Use
  Company Number: IN-LUPIN LIMITED-2017-06921

PATIENT
  Age: 78 Year
  Sex: Male

DRUGS (18)
  1. ETHAMBUTOL [Concomitant]
     Active Substance: ETHAMBUTOL HYDROCHLORIDE
     Indication: PLEURAL EFFUSION
     Dosage: UNK
     Route: 065
  2. PYRAZINAMIDE. [Concomitant]
     Active Substance: PYRAZINAMIDE
     Indication: PLEURAL EFFUSION
     Dosage: UNK
     Route: 065
  3. CEFTRIAXONE INJECTION [Suspect]
     Active Substance: CEFTRIAXONE SODIUM
     Indication: PLEURAL EFFUSION
     Dosage: 1 GM, BID
     Route: 042
  4. RANITIDINE. [Concomitant]
     Active Substance: RANITIDINE
     Indication: PLEURAL EFFUSION
     Dosage: 50 MG, BID (12 HOURLY)
     Route: 042
  5. RIFAMPIN. [Suspect]
     Active Substance: RIFAMPIN
     Indication: PLEURAL EFFUSION
     Dosage: UNK
     Route: 065
  6. IPRATROPIUM BROMIDE AND SALBUTAMOL SULFATE [Concomitant]
     Active Substance: ALBUTEROL SULFATE\IPRATROPIUM BROMIDE
     Indication: PLEURAL EFFUSION
     Dosage: UNK UNK, TID (8 HOURLY)
     Route: 065
  7. IPRATROPIUM BROMIDE AND SALBUTAMOL SULFATE [Concomitant]
     Active Substance: ALBUTEROL SULFATE\IPRATROPIUM BROMIDE
     Indication: PNEUMOTHORAX
  8. ETHAMBUTOL [Concomitant]
     Active Substance: ETHAMBUTOL HYDROCHLORIDE
     Indication: PNEUMOTHORAX
  9. DERIPHYLLIN [Concomitant]
     Active Substance: ETOFYLLINE\THEOPHYLLINE
     Indication: PLEURAL EFFUSION
     Dosage: 43 MG, TID
     Route: 042
  10. CEFTRIAXONE INJECTION [Suspect]
     Active Substance: CEFTRIAXONE SODIUM
     Indication: PNEUMOTHORAX
  11. DERIPHYLLIN [Concomitant]
     Active Substance: ETOFYLLINE\THEOPHYLLINE
     Indication: PNEUMOTHORAX
  12. ISONIAZID. [Concomitant]
     Active Substance: ISONIAZID
     Indication: PLEURAL EFFUSION
     Dosage: UNK
     Route: 065
  13. ISONIAZID. [Concomitant]
     Active Substance: ISONIAZID
     Indication: PNEUMOTHORAX
  14. PYRAZINAMIDE. [Concomitant]
     Active Substance: PYRAZINAMIDE
     Indication: PNEUMOTHORAX
  15. RANITIDINE. [Concomitant]
     Active Substance: RANITIDINE
     Indication: PNEUMOTHORAX
  16. CEFAZOLINE [Suspect]
     Active Substance: CEFAZOLIN SODIUM
     Indication: PNEUMOTHORAX
  17. CEFAZOLINE [Suspect]
     Active Substance: CEFAZOLIN SODIUM
     Indication: PLEURAL EFFUSION
     Dosage: 1 G, TID (8 HOURLY)
     Route: 042
  18. RIFAMPIN. [Suspect]
     Active Substance: RIFAMPIN
     Indication: PNEUMOTHORAX

REACTIONS (1)
  - Pseudomembranous colitis [Recovering/Resolving]
